FAERS Safety Report 5118485-4 (Version None)
Quarter: 2006Q3

REPORT INFORMATION
  Report Type: 
  Country: None (occurrence: None)
  Receive Date: 20060926
  Receipt Date: 20060914
  Transmission Date: 20061208
  Serious: Yes (Hospitalization, Other)
  Sender: FDA-Public Use
  Company Number: 200610823BFR

PATIENT
  Age: 20 Month
  Sex: Male
  Weight: 12 kg

DRUGS (75)
  1. HELIXATE [Suspect]
     Indication: FACTOR VIII DEFICIENCY
     Dosage: SEE IMAGE
     Route: 042
     Dates: start: 20041212, end: 20041214
  2. HELIXATE [Suspect]
     Indication: HAEMORRHAGE
     Dosage: SEE IMAGE
     Route: 042
     Dates: start: 20041212, end: 20041214
  3. HELIXATE [Suspect]
     Indication: HAEMORRHAGE PROPHYLAXIS
     Dosage: SEE IMAGE
     Route: 042
     Dates: start: 20041212, end: 20041214
  4. HELIXATE [Suspect]
     Indication: FACTOR VIII DEFICIENCY
     Dosage: SEE IMAGE
     Route: 042
     Dates: start: 20050601, end: 20050602
  5. HELIXATE [Suspect]
     Indication: HAEMORRHAGE
     Dosage: SEE IMAGE
     Route: 042
     Dates: start: 20050601, end: 20050602
  6. HELIXATE [Suspect]
     Indication: HAEMORRHAGE PROPHYLAXIS
     Dosage: SEE IMAGE
     Route: 042
     Dates: start: 20050601, end: 20050602
  7. HELIXATE [Suspect]
     Indication: FACTOR VIII DEFICIENCY
     Dosage: SEE IMAGE
     Route: 042
     Dates: start: 20050608, end: 20050622
  8. HELIXATE [Suspect]
     Indication: HAEMORRHAGE
     Dosage: SEE IMAGE
     Route: 042
     Dates: start: 20050608, end: 20050622
  9. HELIXATE [Suspect]
     Indication: HAEMORRHAGE PROPHYLAXIS
     Dosage: SEE IMAGE
     Route: 042
     Dates: start: 20050608, end: 20050622
  10. HELIXATE [Suspect]
     Indication: FACTOR VIII DEFICIENCY
     Dosage: SEE IMAGE
     Route: 042
     Dates: start: 20050703, end: 20050704
  11. HELIXATE [Suspect]
     Indication: HAEMORRHAGE
     Dosage: SEE IMAGE
     Route: 042
     Dates: start: 20050703, end: 20050704
  12. HELIXATE [Suspect]
     Indication: HAEMORRHAGE PROPHYLAXIS
     Dosage: SEE IMAGE
     Route: 042
     Dates: start: 20050703, end: 20050704
  13. HELIXATE [Suspect]
     Indication: FACTOR VIII DEFICIENCY
     Dosage: SEE IMAGE
     Route: 042
     Dates: start: 20050705, end: 20050706
  14. HELIXATE [Suspect]
     Indication: HAEMORRHAGE
     Dosage: SEE IMAGE
     Route: 042
     Dates: start: 20050705, end: 20050706
  15. HELIXATE [Suspect]
     Indication: HAEMORRHAGE PROPHYLAXIS
     Dosage: SEE IMAGE
     Route: 042
     Dates: start: 20050705, end: 20050706
  16. HELIXATE [Suspect]
     Indication: FACTOR VIII DEFICIENCY
     Dosage: SEE IMAGE
     Route: 042
     Dates: start: 20050705, end: 20050706
  17. HELIXATE [Suspect]
     Indication: HAEMORRHAGE
     Dosage: SEE IMAGE
     Route: 042
     Dates: start: 20050705, end: 20050706
  18. HELIXATE [Suspect]
     Indication: HAEMORRHAGE PROPHYLAXIS
     Dosage: SEE IMAGE
     Route: 042
     Dates: start: 20050705, end: 20050706
  19. HELIXATE [Suspect]
     Indication: FACTOR VIII DEFICIENCY
     Dosage: SEE IMAGE
     Route: 042
     Dates: start: 20050708, end: 20050709
  20. HELIXATE [Suspect]
     Indication: HAEMORRHAGE
     Dosage: SEE IMAGE
     Route: 042
     Dates: start: 20050708, end: 20050709
  21. HELIXATE [Suspect]
     Indication: HAEMORRHAGE PROPHYLAXIS
     Dosage: SEE IMAGE
     Route: 042
     Dates: start: 20050708, end: 20050709
  22. HELIXATE [Suspect]
     Indication: FACTOR VIII DEFICIENCY
     Dosage: SEE IMAGE
     Route: 042
     Dates: start: 20050318
  23. HELIXATE [Suspect]
     Indication: HAEMORRHAGE
     Dosage: SEE IMAGE
     Route: 042
     Dates: start: 20050318
  24. HELIXATE [Suspect]
     Indication: HAEMORRHAGE PROPHYLAXIS
     Dosage: SEE IMAGE
     Route: 042
     Dates: start: 20050318
  25. HELIXATE [Suspect]
     Indication: FACTOR VIII DEFICIENCY
     Dosage: SEE IMAGE
     Route: 042
     Dates: start: 20050419
  26. HELIXATE [Suspect]
     Indication: HAEMORRHAGE
     Dosage: SEE IMAGE
     Route: 042
     Dates: start: 20050419
  27. HELIXATE [Suspect]
     Indication: HAEMORRHAGE PROPHYLAXIS
     Dosage: SEE IMAGE
     Route: 042
     Dates: start: 20050419
  28. HELIXATE [Suspect]
     Indication: FACTOR VIII DEFICIENCY
     Dosage: SEE IMAGE
     Route: 042
     Dates: start: 20050525
  29. HELIXATE [Suspect]
     Indication: HAEMORRHAGE
     Dosage: SEE IMAGE
     Route: 042
     Dates: start: 20050525
  30. HELIXATE [Suspect]
     Indication: HAEMORRHAGE PROPHYLAXIS
     Dosage: SEE IMAGE
     Route: 042
     Dates: start: 20050525
  31. HELIXATE [Suspect]
     Indication: FACTOR VIII DEFICIENCY
     Dosage: SEE IMAGE
     Route: 042
     Dates: start: 20050628
  32. HELIXATE [Suspect]
     Indication: HAEMORRHAGE
     Dosage: SEE IMAGE
     Route: 042
     Dates: start: 20050628
  33. HELIXATE [Suspect]
     Indication: HAEMORRHAGE PROPHYLAXIS
     Dosage: SEE IMAGE
     Route: 042
     Dates: start: 20050628
  34. HELIXATE [Suspect]
     Indication: FACTOR VIII DEFICIENCY
     Dosage: SEE IMAGE
     Route: 042
     Dates: start: 20050702
  35. HELIXATE [Suspect]
     Indication: HAEMORRHAGE
     Dosage: SEE IMAGE
     Route: 042
     Dates: start: 20050702
  36. HELIXATE [Suspect]
     Indication: HAEMORRHAGE PROPHYLAXIS
     Dosage: SEE IMAGE
     Route: 042
     Dates: start: 20050702
  37. HELIXATE [Suspect]
     Indication: FACTOR VIII DEFICIENCY
     Dosage: SEE IMAGE
     Route: 042
     Dates: start: 20050707
  38. HELIXATE [Suspect]
     Indication: HAEMORRHAGE
     Dosage: SEE IMAGE
     Route: 042
     Dates: start: 20050707
  39. HELIXATE [Suspect]
     Indication: HAEMORRHAGE PROPHYLAXIS
     Dosage: SEE IMAGE
     Route: 042
     Dates: start: 20050707
  40. HELIXATE [Suspect]
     Indication: FACTOR VIII DEFICIENCY
     Dosage: SEE IMAGE
     Route: 042
     Dates: start: 20050707
  41. HELIXATE [Suspect]
     Indication: HAEMORRHAGE
     Dosage: SEE IMAGE
     Route: 042
     Dates: start: 20050707
  42. HELIXATE [Suspect]
     Indication: HAEMORRHAGE PROPHYLAXIS
     Dosage: SEE IMAGE
     Route: 042
     Dates: start: 20050707
  43. HELIXATE [Suspect]
     Indication: FACTOR VIII DEFICIENCY
     Dosage: SEE IMAGE
     Route: 042
     Dates: start: 20050708
  44. HELIXATE [Suspect]
     Indication: HAEMORRHAGE
     Dosage: SEE IMAGE
     Route: 042
     Dates: start: 20050708
  45. HELIXATE [Suspect]
     Indication: HAEMORRHAGE PROPHYLAXIS
     Dosage: SEE IMAGE
     Route: 042
     Dates: start: 20050708
  46. HELIXATE [Suspect]
     Indication: FACTOR VIII DEFICIENCY
     Dosage: SEE IMAGE
     Route: 042
     Dates: start: 20050709
  47. HELIXATE [Suspect]
     Indication: HAEMORRHAGE
     Dosage: SEE IMAGE
     Route: 042
     Dates: start: 20050709
  48. HELIXATE [Suspect]
     Indication: HAEMORRHAGE PROPHYLAXIS
     Dosage: SEE IMAGE
     Route: 042
     Dates: start: 20050709
  49. HELIXATE [Suspect]
     Indication: FACTOR VIII DEFICIENCY
     Dosage: SEE IMAGE
     Route: 042
     Dates: start: 20050709
  50. HELIXATE [Suspect]
     Indication: HAEMORRHAGE
     Dosage: SEE IMAGE
     Route: 042
     Dates: start: 20050709
  51. HELIXATE [Suspect]
     Indication: HAEMORRHAGE PROPHYLAXIS
     Dosage: SEE IMAGE
     Route: 042
     Dates: start: 20050709
  52. HELIXATE [Suspect]
     Indication: FACTOR VIII DEFICIENCY
     Dosage: SEE IMAGE
     Route: 042
     Dates: start: 20050709
  53. HELIXATE [Suspect]
     Indication: HAEMORRHAGE
     Dosage: SEE IMAGE
     Route: 042
     Dates: start: 20050709
  54. HELIXATE [Suspect]
     Indication: HAEMORRHAGE PROPHYLAXIS
     Dosage: SEE IMAGE
     Route: 042
     Dates: start: 20050709
  55. HELIXATE [Suspect]
     Indication: FACTOR VIII DEFICIENCY
     Dosage: SEE IMAGE
     Route: 042
     Dates: start: 20050713
  56. HELIXATE [Suspect]
     Indication: HAEMORRHAGE
     Dosage: SEE IMAGE
     Route: 042
     Dates: start: 20050713
  57. HELIXATE [Suspect]
     Indication: HAEMORRHAGE PROPHYLAXIS
     Dosage: SEE IMAGE
     Route: 042
     Dates: start: 20050713
  58. HELIXATE [Suspect]
     Indication: FACTOR VIII DEFICIENCY
     Dosage: SEE IMAGE
     Route: 042
     Dates: start: 20050713
  59. HELIXATE [Suspect]
     Indication: HAEMORRHAGE
     Dosage: SEE IMAGE
     Route: 042
     Dates: start: 20050713
  60. HELIXATE [Suspect]
     Indication: HAEMORRHAGE PROPHYLAXIS
     Dosage: SEE IMAGE
     Route: 042
     Dates: start: 20050713
  61. HELIXATE [Suspect]
     Indication: FACTOR VIII DEFICIENCY
     Dosage: SEE IMAGE
     Route: 042
     Dates: start: 20050714
  62. HELIXATE [Suspect]
     Indication: HAEMORRHAGE
     Dosage: SEE IMAGE
     Route: 042
     Dates: start: 20050714
  63. HELIXATE [Suspect]
     Indication: HAEMORRHAGE PROPHYLAXIS
     Dosage: SEE IMAGE
     Route: 042
     Dates: start: 20050714
  64. HELIXATE [Suspect]
     Indication: FACTOR VIII DEFICIENCY
     Dosage: SEE IMAGE
     Route: 042
     Dates: start: 20050714
  65. HELIXATE [Suspect]
     Indication: HAEMORRHAGE
     Dosage: SEE IMAGE
     Route: 042
     Dates: start: 20050714
  66. HELIXATE [Suspect]
     Indication: HAEMORRHAGE PROPHYLAXIS
     Dosage: SEE IMAGE
     Route: 042
     Dates: start: 20050714
  67. HELIXATE [Suspect]
  68. HELIXATE [Suspect]
  69. HELIXATE [Suspect]
  70. HELIXATE [Suspect]
  71. HELIXATE [Suspect]
  72. HELIXATE [Suspect]
  73. HELIXATE [Suspect]
  74. HELIXATE [Suspect]
  75. HELIXATE [Suspect]

REACTIONS (1)
  - FACTOR VIII INHIBITION [None]
